FAERS Safety Report 9363363 (Version 8)
Quarter: 2015Q3

REPORT INFORMATION
  Report Type: Report from Study
  Country: BR (occurrence: BR)
  Receive Date: 20130624
  Receipt Date: 20150910
  Transmission Date: 20151125
  Serious: Yes (Hospitalization, Other)
  Sender: FDA-Public Use
  Company Number: BR-ROCHE-1000700

PATIENT
  Sex: Female
  Weight: 89 kg

DRUGS (22)
  1. MABTHERA [Suspect]
     Active Substance: RITUXIMAB
     Indication: RHEUMATOID ARTHRITIS
     Route: 042
     Dates: start: 20090701, end: 200907
  2. MABTHERA [Suspect]
     Active Substance: RITUXIMAB
     Route: 042
     Dates: start: 20111020
  3. MABTHERA [Suspect]
     Active Substance: RITUXIMAB
     Route: 042
     Dates: start: 20140806
  4. ACTEMRA [Suspect]
     Active Substance: TOCILIZUMAB
     Route: 042
     Dates: start: 20131031
  5. MABTHERA [Suspect]
     Active Substance: RITUXIMAB
     Route: 042
     Dates: start: 20140212
  6. PREDSIM [Concomitant]
     Active Substance: PREDNISOLONE
     Route: 065
  7. REUQUINOL [Concomitant]
     Active Substance: HYDROXYCHLOROQUINE SULFATE
     Route: 065
  8. RIVOTRIL [Concomitant]
     Active Substance: CLONAZEPAM
     Indication: PANIC DISORDER
     Route: 065
  9. PREDSIN [Concomitant]
     Route: 065
  10. BUPROPION. [Concomitant]
     Active Substance: BUPROPION
     Route: 065
  11. RETINOL [Concomitant]
     Active Substance: RETINOL
  12. IMURAN [Concomitant]
     Active Substance: AZATHIOPRINE
     Indication: SJOGREN^S SYNDROME
     Route: 065
  13. MABTHERA [Suspect]
     Active Substance: RITUXIMAB
     Route: 042
     Dates: start: 20140226
  14. MABTHERA [Suspect]
     Active Substance: RITUXIMAB
     Route: 042
     Dates: start: 20140820, end: 20140820
  15. ACTEMRA [Suspect]
     Active Substance: TOCILIZUMAB
     Route: 042
     Dates: start: 20140212
  16. ACTEMRA [Suspect]
     Active Substance: TOCILIZUMAB
     Indication: RHEUMATOID ARTHRITIS
     Route: 042
     Dates: start: 20130928
  17. NAPROXEN. [Suspect]
     Active Substance: NAPROXEN
     Indication: PRODUCT USED FOR UNKNOWN INDICATION
     Route: 065
  18. NABUMETONE. [Concomitant]
     Active Substance: NABUMETONE
  19. MABTHERA [Suspect]
     Active Substance: RITUXIMAB
     Route: 042
     Dates: start: 20111005
  20. METHOTREXATE [Concomitant]
     Active Substance: METHOTREXATE
  21. ORENCIA [Concomitant]
     Active Substance: ABATACEPT
  22. RIVOTRIL [Concomitant]
     Active Substance: CLONAZEPAM
     Route: 065

REACTIONS (10)
  - Pyrexia [Unknown]
  - Bedridden [Unknown]
  - Maternal exposure before pregnancy [Unknown]
  - Pruritus [Unknown]
  - Rash erythematous [Unknown]
  - Gastroenteritis [Unknown]
  - Uterine leiomyoma [Unknown]
  - Pain [Unknown]
  - Fibromyalgia [Unknown]
  - General physical health deterioration [Unknown]
